FAERS Safety Report 5239304-1 (Version None)
Quarter: 2007Q1

REPORT INFORMATION
  Report Type: 
  Country: None (occurrence: None)
  Receive Date: 20070216
  Receipt Date: 20070205
  Transmission Date: 20070707
  Serious: Yes (Death, Hospitalization, Other)
  Sender: FDA-Public Use
  Company Number: JP-JNJFOC-20060805904

PATIENT
  Sex: Female
  Weight: 54 kg

DRUGS (28)
  1. REMICADE [Suspect]
     Route: 042
  2. REMICADE [Suspect]
     Route: 042
  3. REMICADE [Suspect]
     Indication: FISTULA
     Route: 042
  4. REMICADE [Suspect]
     Indication: CROHN'S DISEASE
     Route: 042
  5. HICALIQ RF [Suspect]
     Indication: DRUG USE FOR UNKNOWN INDICATION
  6. ARODATE [Concomitant]
     Route: 042
  7. CEFMETAZON [Concomitant]
     Route: 042
  8. PENTASA [Concomitant]
     Indication: CROHN'S DISEASE
     Route: 048
  9. LASIX [Concomitant]
     Route: 048
  10. GASTER D [Concomitant]
     Route: 048
  11. EBRANTIL [Concomitant]
     Route: 048
  12. GANATON [Concomitant]
     Route: 048
  13. GASCON [Concomitant]
     Route: 048
  14. TOUGHMAC E [Concomitant]
     Route: 048
  15. ASPARA K [Concomitant]
     Route: 048
  16. ROCALTOROL [Concomitant]
     Route: 048
  17. GLAKAY [Concomitant]
     Route: 048
  18. CIPROFLOXACIN [Concomitant]
     Indication: CROHN'S DISEASE
     Route: 048
  19. ELCITONIN [Concomitant]
     Dosage: 20 ^UT^
     Route: 030
  20. PRODIF [Concomitant]
     Dosage: 'FOSFLUCONAZOLE^
     Route: 042
  21. MYSLEE [Concomitant]
     Indication: DRUG USE FOR UNKNOWN INDICATION
     Route: 048
  22. PRIMPERAN [Concomitant]
     Route: 042
  23. INOVAN [Concomitant]
     Route: 042
  24. HUMULIN 70/30 [Concomitant]
     Dosage: DOSE = 20UT
     Route: 042
  25. ALBUMIN (HUMAN) [Concomitant]
  26. SULPERAZON [Concomitant]
     Route: 042
  27. MEROPEN [Concomitant]
     Route: 042
  28. POTASSIUM ACETATE [Concomitant]
     Indication: HYPOKALAEMIA

REACTIONS (15)
  - ANAL CANCER [None]
  - ANAL FISTULA [None]
  - ANAL STENOSIS [None]
  - ASTHENIA [None]
  - DEVICE RELATED INFECTION [None]
  - FALL [None]
  - HYPOAESTHESIA [None]
  - HYPOKALAEMIA [None]
  - INTRACARDIAC THROMBUS [None]
  - METASTASES TO LIVER [None]
  - METASTASES TO LUNG [None]
  - METASTASES TO PERITONEUM [None]
  - PERIPHERAL COLDNESS [None]
  - SPINAL COMPRESSION FRACTURE [None]
  - VENA CAVA THROMBOSIS [None]
